FAERS Safety Report 7587792-8 (Version None)
Quarter: 2011Q3

REPORT INFORMATION
  Report Type: 
  Country: None (occurrence: None)
  Receive Date: 20110705
  Receipt Date: 20110624
  Transmission Date: 20111222
  Serious: Yes (Hospitalization)
  Sender: FDA-Public Use
  Company Number: US-BIOGENIDEC-2011BI020542

PATIENT
  Age: 47 Year
  Sex: Female

DRUGS (14)
  1. ASPIRIN [Concomitant]
  2. LISINOPRIL [Concomitant]
  3. LOVASTATIN [Concomitant]
  4. VALIUM [Concomitant]
  5. TYSABRI [Suspect]
     Indication: MULTIPLE SCLEROSIS
     Route: 042
     Dates: start: 20090226, end: 20110401
  6. BACLOFEN [Concomitant]
  7. PROVIGIL [Concomitant]
  8. MORPHINE [Concomitant]
  9. PRIMIDONE [Concomitant]
  10. ZANTAC [Concomitant]
  11. REQUIP [Concomitant]
  12. CELEXA [Concomitant]
  13. OXYBUTYNIN [Concomitant]
  14. SAVELLA [Concomitant]

REACTIONS (3)
  - MUSCULOSKELETAL STIFFNESS [None]
  - PNEUMONIA [None]
  - DYSPHAGIA [None]
